FAERS Safety Report 6434623-5 (Version None)
Quarter: 2009Q4

REPORT INFORMATION
  Report Type: 
  Country: None (occurrence: None)
  Receive Date: 20091110
  Receipt Date: 20091104
  Transmission Date: 20100525
  Serious: Yes (Hospitalization)
  Sender: FDA-Public Use
  Company Number: B0601770A

PATIENT
  Age: 74 Year
  Sex: Male

DRUGS (14)
  1. ARIXTRA [Suspect]
     Indication: ARTERITIS OBLITERANS
     Route: 058
     Dates: start: 20090819, end: 20090908
  2. KARDEGIC 160 [Suspect]
     Indication: ARTERITIS OBLITERANS
     Dosage: 160MG PER DAY
     Route: 048
     Dates: start: 20090905, end: 20090908
  3. KARDEGIC [Suspect]
     Indication: ARTERITIS OBLITERANS
     Route: 048
     Dates: start: 20090909, end: 20090909
  4. MEDROL [Concomitant]
     Route: 048
     Dates: start: 20090101
  5. LEVOTHYROXINE SODIUM [Concomitant]
     Indication: HYPOTHYROIDISM
     Route: 048
  6. ESIDRIX [Concomitant]
     Route: 065
  7. LASILIX [Concomitant]
     Route: 065
  8. DIFFU K [Concomitant]
     Dosage: 6UNIT PER DAY
     Route: 065
  9. THERALENE [Concomitant]
     Dosage: 10DROP AT NIGHT
     Route: 065
  10. OXEOL [Concomitant]
     Route: 065
     Dates: start: 20090904
  11. DIAMOX SRC [Concomitant]
     Dosage: 500MG TWICE PER DAY
     Route: 065
     Dates: start: 20090904
  12. VECTARION [Concomitant]
     Route: 065
     Dates: start: 20090904
  13. BRICANYL [Concomitant]
     Route: 065
     Dates: start: 20090904
  14. PULMICORT [Concomitant]
     Route: 055
     Dates: start: 20090904

REACTIONS (6)
  - HAEMATOMA [None]
  - HAEMOGLOBIN DECREASED [None]
  - MUSCLE HAEMORRHAGE [None]
  - OFF LABEL USE [None]
  - SENSORY LOSS [None]
  - TEMPERATURE DIFFERENCE OF EXTREMITIES [None]
